FAERS Safety Report 4289297-9 (Version None)
Quarter: 2004Q1

REPORT INFORMATION
  Report Type: 
  Country: None (occurrence: None)
  Receive Date: 20040209
  Receipt Date: 20040209
  Transmission Date: 20041129
  Serious: No
  Sender: FDA-Public Use
  Company Number: None

PATIENT
  Age: 56 Year
  Sex: Male
  Weight: 139.7079 kg

DRUGS (8)
  1. ZETIA [Suspect]
     Indication: CORONARY ARTERY DISEASE
     Dosage: 10 MG QD ORAL
     Route: 048
     Dates: start: 20040102, end: 20040116
  2. DIOVAN [Concomitant]
  3. PACERONE [Concomitant]
  4. COREG [Concomitant]
  5. LIPITOR [Concomitant]
  6. ASPIRIN [Concomitant]
  7. PLAVIX [Concomitant]
  8. TRICOR [Concomitant]

REACTIONS (1)
  - HAEMATOCHEZIA [None]
